FAERS Safety Report 15963274 (Version 1)
Quarter: 2019Q1

REPORT INFORMATION
  Report Type: Spontaneous
  Country: JP (occurrence: JP)
  Receive Date: 20190214
  Receipt Date: 20190214
  Transmission Date: 20190417
  Serious: Yes (Other)
  Sender: FDA-Public Use
  Company Number: JP-PFIZER INC-2019059156

PATIENT
  Age: 78 Year
  Sex: Female

DRUGS (3)
  1. LYRICA [Suspect]
     Active Substance: PREGABALIN
     Dosage: 2 DF, UNK (2 TABLETS)
     Route: 048
     Dates: start: 20181204
  2. LYRICA [Suspect]
     Active Substance: PREGABALIN
     Dosage: UNK UNK, AS NEEDED (BEFORE BEDTIME)
     Route: 048
     Dates: start: 201812
  3. LYRICA [Suspect]
     Active Substance: PREGABALIN
     Indication: POST HERPETIC NEURALGIA
     Dosage: 1 DF, UNK (1 TABLET)
     Route: 048
     Dates: start: 20181126

REACTIONS (7)
  - Inappropriate schedule of product administration [Unknown]
  - Movement disorder [Unknown]
  - Oedema peripheral [Not Recovered/Not Resolved]
  - Influenza [Recovered/Resolved]
  - Malaise [Not Recovered/Not Resolved]
  - Myalgia [Unknown]
  - Arrhythmia [Unknown]

NARRATIVE: CASE EVENT DATE: 201812
